FAERS Safety Report 5017543-2 (Version None)
Quarter: 2006Q2

REPORT INFORMATION
  Report Type: 
  Country: None (occurrence: None)
  Receive Date: 20060601
  Receipt Date: 20060601
  Transmission Date: 20061013
  Serious: Yes (Other)
  Sender: FDA-Public Use
  Company Number: None

PATIENT
  Age: 17 Year
  Sex: Male
  Weight: 75.2971 kg

DRUGS (1)
  1. DESMOPRESSIN   .2MG   TEVA [Suspect]
     Indication: DIABETES INSIPIDUS
     Dosage: 1 TABLET   3 TIMES A DAY   PO
     Route: 048
     Dates: start: 20060401, end: 20060530

REACTIONS (2)
  - DRUG EFFECT DECREASED [None]
  - THERAPEUTIC RESPONSE UNEXPECTED WITH DRUG SUBSTITUTION [None]
